FAERS Safety Report 4488311-5 (Version None)
Quarter: 2004Q4

REPORT INFORMATION
  Report Type: 
  Country: None (occurrence: None)
  Receive Date: 20041028
  Receipt Date: 20041022
  Transmission Date: 20050328
  Serious: Yes (Other)
  Sender: FDA-Public Use
  Company Number: PHBS2004IT14172

PATIENT
  Age: 47 Year
  Sex: Female

DRUGS (1)
  1. TORECAN [Suspect]
     Indication: VERTIGO
     Dosage: 20 MG/DAY
     Route: 065

REACTIONS (8)
  - BRADYKINESIA [None]
  - DYSPHONIA [None]
  - GAIT DISTURBANCE [None]
  - MASKED FACIES [None]
  - MUSCLE RIGIDITY [None]
  - PARKINSONISM [None]
  - SINGLE PHOTON EMISSION COMPUTERISED TOMOGRAM ABNORMAL [None]
  - TREMOR [None]
